FAERS Safety Report 19377472 (Version 1)
Quarter: 2021Q2

REPORT INFORMATION
  Report Type: Spontaneous
  Country: SE (occurrence: SE)
  Receive Date: 20210605
  Receipt Date: 20210605
  Transmission Date: 20210717
  Serious: Yes (Hospitalization, Disabling)
  Sender: FDA-Public Use
  Company Number: SE-TEVA-2021-SE-1918602

PATIENT
  Age: 48 Year
  Sex: Female
  Weight: 79 kg

DRUGS (1)
  1. STESOLID 5 MG TABLETT [Suspect]
     Active Substance: DIAZEPAM
     Indication: ANXIETY
     Dosage: 5MG X 3, 15 MG
     Route: 048
     Dates: start: 20120901, end: 20171101

REACTIONS (11)
  - Memory impairment [Not Recovered/Not Resolved]
  - Illusion [Not Recovered/Not Resolved]
  - Muscular weakness [Not Recovered/Not Resolved]
  - Derealisation [Not Recovered/Not Resolved]
  - Hypoaesthesia [Not Recovered/Not Resolved]
  - Akathisia [Unknown]
  - Anxiety [Unknown]
  - Nervousness [Not Recovered/Not Resolved]
  - Neuropathy peripheral [Not Recovered/Not Resolved]
  - Paraesthesia [Not Recovered/Not Resolved]
  - Pain [Not Recovered/Not Resolved]

NARRATIVE: CASE EVENT DATE: 20170501
